FAERS Safety Report 15467027 (Version 1)
Quarter: 2018Q4

REPORT INFORMATION
  Report Type: Spontaneous
  Country: ID (occurrence: ID)
  Receive Date: 20181005
  Receipt Date: 20181005
  Transmission Date: 20190204
  Serious: Yes (Death)
  Sender: FDA-Public Use
  Company Number: ID-ROCHE-2192703

PATIENT
  Age: 71 Year
  Sex: Female

DRUGS (2)
  1. ADRENALIN [Concomitant]
     Active Substance: EPINEPHRINE
  2. MABTHERA [Suspect]
     Active Substance: RITUXIMAB
     Indication: PRODUCT USED FOR UNKNOWN INDICATION
     Route: 042
     Dates: end: 20180929

REACTIONS (2)
  - Anaphylactic shock [Fatal]
  - Dyspnoea [Fatal]

NARRATIVE: CASE EVENT DATE: 20180929
